FAERS Safety Report 8585815-0 (Version None)
Quarter: 2012Q3

REPORT INFORMATION
  Report Type: 
  Country: None (occurrence: None)
  Receive Date: 20120810
  Receipt Date: 20120801
  Transmission Date: 20120928
  Serious: Yes (Hospitalization)
  Sender: FDA-Public Use
  Company Number: US-ELI_LILLY_AND_COMPANY-US201205006086

PATIENT
  Sex: Female

DRUGS (29)
  1. MAXZIDE [Concomitant]
     Dosage: UNK UNK, QD
  2. ADVIL PM                           /05810501/ [Concomitant]
     Dosage: UNK
  3. PROLIA [Concomitant]
  4. CELEBREX [Concomitant]
     Dosage: 200 MG, QD
  5. SLOW-K [Concomitant]
     Dosage: 10 MEQ, PRN
  6. ASPIRIN [Concomitant]
     Dosage: 81 MG, QD
  7. FISH OIL [Concomitant]
     Dosage: 1000 MG, QD
  8. FIBERCON [Concomitant]
     Dosage: UNK UNK, BID
  9. HYDROCODONE BITARTRATE [Concomitant]
     Indication: PAIN
     Dosage: UNK UNK, PRN
  10. PEPCID COMPLETE [Concomitant]
     Indication: GASTROOESOPHAGEAL REFLUX DISEASE
     Dosage: UNK
  11. VYTORIN [Concomitant]
     Dosage: UNK UNK, QD
  12. MULTI-VITAMINS [Concomitant]
     Dosage: UNK UNK, QD
  13. FORTEO [Suspect]
     Dosage: UNK
     Dates: start: 20120501, end: 20120701
  14. LOSARTAN POTASSIUM [Concomitant]
     Indication: BLOOD PRESSURE
     Dosage: 50 MG, QD
  15. ASCORBIC ACID [Concomitant]
     Dosage: 500 MG, QD
  16. BENADRYL [Concomitant]
     Dosage: UNK
  17. INSPRA [Concomitant]
     Dosage: 250 MG, BID
  18. ZOFRAN [Concomitant]
     Indication: NAUSEA
     Dosage: 4 MG, PRN
  19. PEPTO BISMOL                       /00139305/ [Concomitant]
     Indication: DIARRHOEA
     Dosage: UNK UNK, PRN
  20. VITAMIN D [Concomitant]
     Dosage: 2000 U, BID
  21. MUCINEX DM [Concomitant]
     Dosage: UNK
  22. FORTEO [Suspect]
     Indication: OSTEOPOROSIS
     Dosage: 20 UG, QD
     Dates: start: 20070101, end: 20090101
  23. TORSEMIDE [Concomitant]
     Dosage: 10 MG, QD
  24. OMEPRAZOLE [Concomitant]
     Dosage: 20 MG, QD
  25. CITRACAL + D [Concomitant]
     Dosage: UNK UNK, BID
  26. COENZYME Q10 [Concomitant]
     Dosage: 150 MG, QD
  27. COUGH SYRUP WITH CODEINE [Concomitant]
     Dosage: UNK
  28. LOPERAMIDE [Concomitant]
     Dosage: UNK
  29. MAGNESIUM [Concomitant]
     Dosage: 400 MG, QD

REACTIONS (19)
  - SPINAL FUSION SURGERY [None]
  - JOINT INJURY [None]
  - BUNION OPERATION [None]
  - INCORRECT DRUG ADMINISTRATION DURATION [None]
  - SCIATICA [None]
  - ROTATOR CUFF SYNDROME [None]
  - FALL [None]
  - FEELING ABNORMAL [None]
  - NERVE COMPRESSION [None]
  - MUSCULOSKELETAL PAIN [None]
  - JOINT RANGE OF MOTION DECREASED [None]
  - VOMITING [None]
  - CERVICAL SPINAL STENOSIS [None]
  - NAUSEA [None]
  - BACK PAIN [None]
  - DIARRHOEA [None]
  - JOINT CREPITATION [None]
  - SUCROSE INTOLERANCE [None]
  - CENTRAL OBESITY [None]
